FAERS Safety Report 10247229 (Version 1)
Quarter: 2014Q2

REPORT INFORMATION
  Report Type: Spontaneous
  Country: US (occurrence: US)
  Receive Date: 20140619
  Receipt Date: 20140619
  Transmission Date: 20141212
  Serious: Yes (Hospitalization)
  Sender: FDA-Public Use
  Company Number: US-GLAXOSMITHKLINE-A1077109A

PATIENT
  Sex: Female

DRUGS (13)
  1. ADVAIR [Suspect]
     Indication: CHRONIC OBSTRUCTIVE PULMONARY DISEASE
     Dosage: 1PUFF VARIABLE DOSE
     Route: 055
  2. VITAMIN B-12 [Concomitant]
  3. MAGNESIUM [Concomitant]
  4. PANTOPRAZOLE [Concomitant]
  5. IRON [Concomitant]
  6. MULTIVITAMIN [Concomitant]
  7. SULFASALAZINE [Concomitant]
  8. DIURETIC [Concomitant]
  9. VITAMIN K [Concomitant]
  10. WARFARIN [Concomitant]
  11. SPIRIVA [Concomitant]
  12. COMBIVENT [Concomitant]
  13. ASMANEX [Concomitant]

REACTIONS (2)
  - Dyspnoea [Unknown]
  - Thrombosis [Not Recovered/Not Resolved]
